FAERS Safety Report 7898492-9 (Version None)
Quarter: 2011Q4

REPORT INFORMATION
  Report Type: 
  Country: None (occurrence: None)
  Receive Date: 20111107
  Receipt Date: 20111102
  Transmission Date: 20120403
  Serious: Yes (Hospitalization)
  Sender: FDA-Public Use
  Company Number: IT-BRISTOL-MYERS SQUIBB COMPANY-16169948

PATIENT
  Age: 72 Year
  Sex: Male

DRUGS (10)
  1. LEVOTHYROXINE SODIUM [Concomitant]
     Dosage: EUTIROX 50MCG 1 UNIT
  2. PREDNISONE [Concomitant]
     Route: 048
  3. COUMADIN [Suspect]
     Indication: PROPHYLAXIS
     Dosage: 1 DF: 1 UNIT
     Route: 048
     Dates: start: 20110101, end: 20111008
  4. OMEPRAZOLE [Concomitant]
     Route: 048
  5. ASPIRIN [Suspect]
     Indication: PROPHYLAXIS
     Dosage: 1 DF: 1 UNIT
     Dates: start: 20110101, end: 20111008
  6. CORDARONE [Concomitant]
     Dosage: 200MG, 1 UNIT.
  7. LASIX [Concomitant]
     Dosage: 25MG, 4 UNITS
  8. MESTINON [Concomitant]
     Indication: OCULAR MYASTHENIA
     Dosage: 1 DF: 4 UNIT
  9. NAPRILENE [Concomitant]
  10. METFORMIN HCL [Concomitant]

REACTIONS (3)
  - EPISTAXIS [None]
  - ANAEMIA [None]
  - INTERNATIONAL NORMALISED RATIO INCREASED [None]
